FAERS Safety Report 8343280-2 (Version None)
Quarter: 2012Q2

REPORT INFORMATION
  Report Type: 
  Country: None (occurrence: None)
  Receive Date: 20120508
  Receipt Date: 20120426
  Transmission Date: 20120825
  Serious: Yes (Hospitalization)
  Sender: FDA-Public Use
  Company Number: US-CELGENEUS-163-21880-12041036

PATIENT
  Sex: Female

DRUGS (20)
  1. DETROL LA [Concomitant]
     Dosage: 4 MILLIGRAM
     Route: 048
     Dates: start: 20120307
  2. KLOR-CON [Concomitant]
     Dosage: 20 MILLIEQUIVALENTS
     Route: 048
     Dates: start: 20120308
  3. NEXIUM [Concomitant]
     Dosage: 40 MILLIEQUIVALENTS
     Route: 048
     Dates: start: 20120307
  4. SENOKOT [Concomitant]
     Dosage: 8.6-50MG
     Route: 048
     Dates: start: 20120307
  5. VALACYCLOVIR [Concomitant]
     Dosage: 500 MILLIGRAM
     Route: 048
     Dates: start: 20120308
  6. ASPIRIN [Concomitant]
     Dosage: 325 MILLIGRAM
     Route: 048
     Dates: start: 20120307
  7. PRAVASTATIN [Concomitant]
     Dosage: 40 MILLIGRAM
     Route: 048
     Dates: start: 20120307
  8. TIMOLOL MALEATE [Concomitant]
     Dosage: 1GTT IN AFFECTED EYE
     Route: 065
     Dates: start: 20120307
  9. VESICARE [Concomitant]
     Dosage: 5 MILLIGRAM
     Route: 048
     Dates: start: 20120308
  10. REVLIMID [Suspect]
     Indication: PLASMACYTOMA
     Dosage: 10 MILLIGRAM
     Route: 048
     Dates: start: 20120409
  11. GABAPENTIN [Concomitant]
     Dosage: 300 MILLIGRAM
     Route: 065
     Dates: start: 20120308
  12. REVLIMID [Suspect]
     Indication: MULTIPLE MYELOMA
     Dosage: 25 MILLIGRAM
     Route: 048
     Dates: start: 20120313, end: 20120101
  13. AMLODIPINE [Concomitant]
     Dosage: 5 MILLIGRAM
     Route: 048
     Dates: start: 20120307
  14. ZOLOFT [Concomitant]
     Dosage: 100 MILLIGRAM
     Route: 048
     Dates: start: 20120307
  15. FUROSEMIDE [Concomitant]
     Dosage: 40 MILLIGRAM
     Route: 065
     Dates: start: 20120308
  16. HEPARIN [Concomitant]
     Dosage: 5,000 UNIT/ML
     Route: 065
     Dates: start: 20120307
  17. LATANOPROST [Concomitant]
     Dosage: 1GTT AFFECTED EYE
     Route: 065
     Dates: start: 20120307
  18. ENOXAPARIN [Concomitant]
     Dosage: 40MG/0.4ML
     Route: 058
     Dates: start: 20120313
  19. OXYCODONE/ACETAMINOPHEN [Concomitant]
     Route: 065
     Dates: start: 20120308
  20. SYNTHROID [Concomitant]
     Dosage: 75 MICROGRAM
     Route: 048
     Dates: start: 20120307

REACTIONS (3)
  - CONDITION AGGRAVATED [None]
  - DIASTOLIC DYSFUNCTION [None]
  - ANAEMIA [None]
